FAERS Safety Report 15483237 (Version 1)
Quarter: 2018Q4

REPORT INFORMATION
  Report Type: Spontaneous
  Country: CA (occurrence: CA)
  Receive Date: 20181010
  Receipt Date: 20181010
  Transmission Date: 20190205
  Serious: Yes (Other)
  Sender: FDA-Public Use
  Company Number: CA-NOVOPROD-625170

PATIENT
  Age: 7 Year
  Sex: Female

DRUGS (3)
  1. NORDITROPIN [Suspect]
     Active Substance: SOMATROPIN
     Dosage: 0.6 MG
     Route: 065
  2. NORDITROPIN [Suspect]
     Active Substance: SOMATROPIN
     Indication: PRODUCT USED FOR UNKNOWN INDICATION
     Dosage: 0.8MG
     Route: 065
  3. NORDITROPIN [Suspect]
     Active Substance: SOMATROPIN
     Dosage: 1 MG
     Route: 065

REACTIONS (3)
  - Drug intolerance [Recovered/Resolved]
  - Wrong schedule [Recovered/Resolved]
  - Thrombosis [Recovered/Resolved]
